FAERS Safety Report 13349139 (Version 8)
Quarter: 2017Q3

REPORT INFORMATION
  Report Type: Spontaneous
  Country: US (occurrence: US)
  Receive Date: 20170320
  Receipt Date: 20170816
  Transmission Date: 20171127
  Serious: Yes (Other)
  Sender: FDA-Public Use
  Company Number: PHEH2017US008069

PATIENT
  Age: 30 Year
  Sex: Female
  Weight: 79.37 kg

DRUGS (2)
  1. ZOFRAN [Suspect]
     Active Substance: ONDANSETRON HYDROCHLORIDE
     Indication: PRODUCT USED FOR UNKNOWN INDICATION
     Route: 048
  2. ONDANSETRON AUROBINDO [Suspect]
     Active Substance: ONDANSETRON HYDROCHLORIDE
     Indication: VOMITING IN PREGNANCY
     Dosage: 4 MG, UNK
     Route: 065
     Dates: start: 20110505, end: 20110903

REACTIONS (5)
  - Maternal exposure during pregnancy [Unknown]
  - Emotional distress [Unknown]
  - Product use issue [Unknown]
  - Premature delivery [Unknown]
  - Premature labour [Unknown]

NARRATIVE: CASE EVENT DATE: 20111116
